FAERS Safety Report 11658957 (Version 2)
Quarter: 2015Q4

REPORT INFORMATION
  Report Type: Spontaneous
  Country: AR (occurrence: AR)
  Receive Date: 20151026
  Receipt Date: 20151027
  Transmission Date: 20160304
  Serious: Yes (Other)
  Sender: FDA-Public Use
  Company Number: CHPA2015AR012286

PATIENT
  Age: 70 Year
  Sex: Female

DRUGS (1)
  1. OTRIVINA [Suspect]
     Active Substance: XYLOMETAZOLINE
     Indication: INFLAMMATION
     Dosage: ONCE OR TWICE DAILY
     Route: 065
     Dates: start: 2011

REACTIONS (5)
  - Cerebral disorder [Recovering/Resolving]
  - Nasal congestion [Recovering/Resolving]
  - Temporal arteritis [Recovering/Resolving]
  - Visual impairment [Recovering/Resolving]
  - Rhinorrhoea [Recovering/Resolving]

NARRATIVE: CASE EVENT DATE: 201506
